FAERS Safety Report 4733373-0 (Version None)
Quarter: 2005Q3

REPORT INFORMATION
  Report Type: 
  Country: None (occurrence: None)
  Receive Date: 20050801
  Receipt Date: 20050801
  Transmission Date: 20060218
  Serious: Yes (Hospitalization)
  Sender: FDA-Public Use
  Company Number: None

PATIENT
  Age: 76 Year
  Sex: Male

DRUGS (12)
  1. LOMOTIL [Suspect]
     Indication: DIARRHOEA
     Dosage: 2 Q 6 H PRN
     Dates: start: 20050620
  2. METRONIDAZOLE [Concomitant]
  3. PROMETHAZINE [Concomitant]
  4. FUROSEMIDE [Concomitant]
  5. TRAMADOL HCL [Concomitant]
  6. CALCIUM ACETATE [Concomitant]
  7. FINASTERIDE [Concomitant]
  8. HYDRALAZINE [Concomitant]
  9. BUPROPION [Concomitant]
  10. LACTULOSE [Concomitant]
  11. M.V.I. [Concomitant]
  12. VIT C [Concomitant]

REACTIONS (1)
  - ILEUS PARALYTIC [None]
